FAERS Safety Report 9083110 (Version 1)
Quarter: 2013Q1

REPORT INFORMATION
  Report Type: Report from Study
  Country: US (occurrence: US)
  Receive Date: 20130131
  Receipt Date: 20130131
  Transmission Date: 20140127
  Serious: No
  Sender: FDA-Public Use
  Company Number: US-ABBOTT-12P-163-0990033-00

PATIENT
  Age: 53 None
  Sex: Female

DRUGS (22)
  1. HUMIRA [Suspect]
     Indication: CROHN^S DISEASE
     Dosage: DAY 1:180MG,DAY 15:80MG,THEN 40MG EVERY OTHER WEEK THEREAFTER
     Route: 058
     Dates: start: 20120925
  2. CALCIUM CITRATE +D [Concomitant]
     Indication: BONE DISORDER
  3. CALCIUM CITRATE +D [Concomitant]
     Indication: ARTHROPATHY
  4. GLUCOSAMINE [Concomitant]
     Indication: BONE DISORDER
  5. MAGNESIUM [Concomitant]
     Indication: CROHN^S DISEASE
     Route: 048
  6. MAGNESIUM [Concomitant]
     Indication: DRUG LEVEL DECREASED
     Dosage: WEEKLY
  7. IRON [Concomitant]
     Indication: DRUG LEVEL DECREASED
     Dosage: WEEKLY
  8. FENTANYL PATCH [Concomitant]
     Indication: PAIN
  9. IMURAN [Concomitant]
     Indication: CROHN^S DISEASE
     Route: 048
  10. FLEXERIL [Concomitant]
     Indication: MUSCLE SPASMS
     Route: 048
  11. PROZAC [Concomitant]
     Indication: ANXIETY DISORDER
     Route: 048
  12. PEPCID [Concomitant]
     Indication: GASTROOESOPHAGEAL REFLUX DISEASE
     Route: 048
  13. GABAPENTIN [Concomitant]
     Indication: NEUROPATHY PERIPHERAL
     Route: 048
  14. FOLIC ACID [Concomitant]
     Indication: PRODUCT USED FOR UNKNOWN INDICATION
  15. B-VITAMINS [Concomitant]
     Indication: DRUG LEVEL DECREASED
  16. TENORMIN [Concomitant]
     Indication: HYPERTENSION
     Route: 048
  17. PRINIVIL [Concomitant]
     Indication: NEPHROPATHY
     Route: 048
  18. PRINIVIL [Concomitant]
     Indication: PROPHYLAXIS
  19. TRAZODONE [Concomitant]
     Indication: INSOMNIA
     Dosage: AT BEDTIME
     Route: 048
  20. HYDROCODONE [Concomitant]
     Indication: PAIN
     Dosage: 7.5/325MG AS NEEDED UP TO 3 DAILY
     Route: 048
  21. NORTREL [Concomitant]
     Indication: HORMONE REPLACEMENT THERAPY
     Dosage: 135/28 1 DAILY
  22. B-12 [Concomitant]
     Indication: PRODUCT USED FOR UNKNOWN INDICATION
     Dosage: MONTHLY
     Route: 050

REACTIONS (6)
  - Dizziness [Unknown]
  - Headache [Not Recovered/Not Resolved]
  - Injection site pain [Unknown]
  - Flushing [Unknown]
  - Cold sweat [Unknown]
  - Nausea [Unknown]
